FAERS Safety Report 24603366 (Version 1)
Quarter: 2024Q4

REPORT INFORMATION
  Report Type: Spontaneous
  Country: US (occurrence: None)
  Receive Date: 20241109
  Receipt Date: 20241109
  Transmission Date: 20250115
  Serious: Yes (Other)
  Sender: Public
  Company Number: None

PATIENT
  Age: 42 Year
  Sex: Female
  Weight: 63 kg

DRUGS (3)
  1. AIMOVIG [Suspect]
     Active Substance: ERENUMAB-AOOE
     Indication: Migraine
     Dosage: OTHER QUANTITY : 1 INJECTION(S);?OTHER FREQUENCY : MONTHLY;?
     Route: 030
  2. AMBIEN [Concomitant]
     Active Substance: ZOLPIDEM TARTRATE
  3. Iron Magnesium [Concomitant]

REACTIONS (5)
  - Abdominal pain upper [None]
  - Feeding disorder [None]
  - Constipation [None]
  - Diarrhoea [None]
  - Chest pain [None]

NARRATIVE: CASE EVENT DATE: 20241011
